FAERS Safety Report 23664070 (Version 1)
Quarter: 2024Q1

REPORT INFORMATION
  Report Type: Spontaneous
  Country: CN (occurrence: None)
  Receive Date: 20240322
  Receipt Date: 20240322
  Transmission Date: 20240410
  Serious: Yes (Other)
  Sender: FDA-Public Use
  Company Number: 2024A066194

PATIENT
  Age: 23494 Day
  Sex: Male
  Weight: 62 kg

DRUGS (1)
  1. BUDESONIDE [Suspect]
     Active Substance: BUDESONIDE
     Indication: Bronchiectasis
     Route: 055
     Dates: start: 20240225, end: 20240225

REACTIONS (5)
  - Tachypnoea [Recovering/Resolving]
  - Orthopnoea [Unknown]
  - Wheezing [Unknown]
  - Cough [Recovering/Resolving]
  - Rales [Unknown]

NARRATIVE: CASE EVENT DATE: 20240225
